FAERS Safety Report 4609034-5 (Version None)
Quarter: 2005Q1

REPORT INFORMATION
  Report Type: 
  Country: None (occurrence: None)
  Receive Date: 20050315
  Receipt Date: 20041124
  Transmission Date: 20050727
  Serious: Yes (Life-Threatening, Hospitalization, Other)
  Sender: FDA-Public Use
  Company Number: JP-ABBOTT-04P-087-0281481-00

PATIENT
  Sex: Male

DRUGS (3)
  1. CEFZON CAPSULE [Suspect]
     Indication: ACUTE TONSILLITIS
     Route: 048
     Dates: start: 20041117, end: 20041117
  2. VOLTAREN [Suspect]
     Indication: ACUTE TONSILLITIS
     Route: 048
     Dates: start: 20041117, end: 20041117
  3. SERRAPEPTASE [Concomitant]
     Indication: DRUG USE FOR UNKNOWN INDICATION
     Dates: start: 20041117, end: 20041117

REACTIONS (5)
  - CHRONIC TONSILLITIS [None]
  - DYSPNOEA [None]
  - EPIGLOTTITIS [None]
  - LARYNGOPHARYNGITIS [None]
  - LOSS OF CONSCIOUSNESS [None]
